FAERS Safety Report 13302018 (Version 2)
Quarter: 2017Q1

REPORT INFORMATION
  Report Type: Spontaneous
  Country: GB (occurrence: GB)
  Receive Date: 20170307
  Receipt Date: 20170317
  Transmission Date: 20170428
  Serious: Yes (Disabling, Other)
  Sender: FDA-Public Use
  Company Number: GB-PFIZER INC-2017089800

PATIENT
  Age: 57 Year
  Sex: Female
  Weight: 82.5 kg

DRUGS (8)
  1. AMOXICILLIN. [Concomitant]
     Active Substance: AMOXICILLIN
     Dosage: 500 MG, THREE TIMES A DAY
     Dates: start: 20170216
  2. CITALOPRAM [Concomitant]
     Active Substance: CITALOPRAM HYDROBROMIDE
     Dosage: 20 MG, ONCE A DAY
     Dates: start: 20160726
  3. LORATADINE. [Concomitant]
     Active Substance: LORATADINE
     Dosage: 10 MG, DAILY
     Dates: start: 20161129
  4. DOXYCYCLINE HYCLATE. [Suspect]
     Active Substance: DOXYCYCLINE HYCLATE
     Indication: COUGH
     Dosage: 100 MG, DAILY
     Route: 048
     Dates: start: 20170213, end: 20170216
  5. CLENIL MODULITE [Concomitant]
     Active Substance: BECLOMETHASONE DIPROPIONATE
     Dosage: 500 UG, TWICE A DAY
     Route: 055
     Dates: start: 20161129
  6. OPTICROM [Concomitant]
     Active Substance: CROMOLYN SODIUM
     Dosage: ONE TO TWO DROPS APPLIED UP TO FOUR TIMES A DAY
     Route: 047
     Dates: start: 20161129
  7. FLUORESCEIN [Concomitant]
     Active Substance: FLUORESCEIN
     Dosage: 0.5 ML, SINGLE
     Route: 047
     Dates: start: 20161129
  8. VENTOLIN [Concomitant]
     Active Substance: ALBUTEROL SULFATE
     Dosage: 200 UG, UNK
     Dates: start: 20161129

REACTIONS (5)
  - Communication disorder [Unknown]
  - Confusional state [Recovering/Resolving]
  - Aphasia [Unknown]
  - Irritability [Unknown]
  - Frustration tolerance decreased [Unknown]

NARRATIVE: CASE EVENT DATE: 20170214
